FAERS Safety Report 24893878 (Version 1)
Quarter: 2025Q1

REPORT INFORMATION
  Report Type: Spontaneous
  Country: DE (occurrence: DE)
  Receive Date: 20250128
  Receipt Date: 20250128
  Transmission Date: 20250409
  Serious: Yes (Disabling, Other)
  Sender: ACCORD
  Company Number: None

PATIENT
  Age: 57 Year
  Sex: Female
  Weight: 60 kg

DRUGS (1)
  1. FINGOLIMOD [Suspect]
     Active Substance: FINGOLIMOD
     Indication: Relapsing-remitting multiple sclerosis
     Dates: start: 201812, end: 202405

REACTIONS (3)
  - Ejection fraction decreased [Not Recovered/Not Resolved]
  - Dilated cardiomyopathy [Not Recovered/Not Resolved]
  - Torsade de pointes [Not Recovered/Not Resolved]

NARRATIVE: CASE EVENT DATE: 20240327
